FAERS Safety Report 6539576-7 (Version None)
Quarter: 2010Q1

REPORT INFORMATION
  Report Type: 
  Country: None (occurrence: None)
  Receive Date: 20100111
  Receipt Date: 20100106
  Transmission Date: 20100710
  Serious: Yes (Other)
  Sender: FDA-Public Use
  Company Number: 1000011141

PATIENT
  Age: 81 Year
  Sex: Female
  Weight: 58.0604 kg

DRUGS (8)
  1. LEXAPRO [Suspect]
     Dates: start: 20090101
  2. LIPITOR [Suspect]
     Indication: BLOOD CHOLESTEROL INCREASED
     Dosage: 10 MG (10 MG, 1 IN 1 D), ORAL
     Route: 048
  3. CENTRUM SILVER [Concomitant]
  4. ECOTRIN [Concomitant]
  5. CALCIUM [Concomitant]
  6. COENZYME Q10 [Concomitant]
  7. D3-VICOTRAT [Concomitant]
  8. MULTIVITAMIN [Concomitant]

REACTIONS (6)
  - ALOPECIA [None]
  - ARTHRITIS [None]
  - DEAFNESS UNILATERAL [None]
  - SCOLIOSIS [None]
  - SPINAL COLUMN STENOSIS [None]
  - TINNITUS [None]
